FAERS Safety Report 6914463-0 (Version None)
Quarter: 2010Q3

REPORT INFORMATION
  Report Type: 
  Country: None (occurrence: None)
  Receive Date: 20100805
  Receipt Date: 20100805
  Transmission Date: 20110219
  Serious: No
  Sender: FDA-Public Use
  Company Number: None

PATIENT
  Age: 31 Year
  Sex: Female
  Weight: 68.0396 kg

DRUGS (1)
  1. LEXAPRO [Suspect]
     Indication: POSTPARTUM DEPRESSION
     Dosage: DAILY PO
     Route: 048
     Dates: start: 20080101, end: 20100803

REACTIONS (4)
  - AGITATION [None]
  - ANXIETY [None]
  - CRYING [None]
  - INSOMNIA [None]
